FAERS Safety Report 8667548 (Version 2)
Quarter: 2013Q4

REPORT INFORMATION
  Report Type: Spontaneous
  Country: US (occurrence: US)
  Receive Date: 20120717
  Receipt Date: 20131101
  Transmission Date: 20140711
  Serious: No
  Sender: FDA-Public Use
  Company Number: US-009507513-1207USA002134

PATIENT
  Age: 32 Year
  Sex: Female
  Weight: 68.27 kg

DRUGS (3)
  1. NUVARING [Suspect]
     Indication: CONTRACEPTION
     Dosage: UNK, QM
     Route: 067
  2. FLONASE [Concomitant]
     Dosage: UNK
  3. CLARITIN [Concomitant]
     Dosage: UNK

REACTIONS (1)
  - Metrorrhagia [Unknown]
